FAERS Safety Report 9080611 (Version 1)
Quarter: 2013Q1

REPORT INFORMATION
  Report Type: Report from Study
  Country: US (occurrence: US)
  Receive Date: 20130130
  Receipt Date: 20130130
  Transmission Date: 20140127
  Serious: No
  Sender: FDA-Public Use
  Company Number: US-ABBOTT-12P-163-0972606-00

PATIENT
  Age: 60 Year
  Sex: Female

DRUGS (3)
  1. HUMIRA 40 MG/0.8 ML PEN [Suspect]
     Indication: RHEUMATOID ARTHRITIS
     Dates: start: 2011
  2. ELAVIL [Concomitant]
     Indication: FIBROMYALGIA
     Dosage: DAILY
     Route: 048
  3. BUTALBITAL [Concomitant]
     Indication: MIGRAINE

REACTIONS (2)
  - Device malfunction [Recovering/Resolving]
  - Drug ineffective [Recovering/Resolving]
